FAERS Safety Report 18723698 (Version 2)
Quarter: 2021Q1

REPORT INFORMATION
  Report Type: Report from Study
  Country: MX (occurrence: MX)
  Receive Date: 20210111
  Receipt Date: 20210128
  Transmission Date: 20210419
  Serious: Yes (Death, Hospitalization, Other)
  Sender: FDA-Public Use
  Company Number: NVSC2021MX003316

PATIENT
  Age: 71 Year
  Sex: Female
  Weight: 58 kg

DRUGS (1)
  1. TASIGNA [Suspect]
     Active Substance: NILOTINIB
     Indication: CHRONIC MYELOID LEUKAEMIA
     Dosage: 800 MG, QD
     Route: 048
     Dates: start: 2017, end: 20210115

REACTIONS (22)
  - Pneumonia [Recovered/Resolved with Sequelae]
  - Chest pain [Unknown]
  - Appendicitis [Unknown]
  - Aphasia [Unknown]
  - Memory impairment [Unknown]
  - Weight decreased [Unknown]
  - Product prescribing error [Unknown]
  - Leukaemia [Fatal]
  - Diabetes mellitus [Fatal]
  - Pulmonary vascular disorder [Fatal]
  - Fatigue [Unknown]
  - Pleural effusion [Unknown]
  - Dyspnoea [Unknown]
  - Disorientation [Unknown]
  - Asthenia [Unknown]
  - Lung disorder [Fatal]
  - Abdominal pain upper [Unknown]
  - Hallucination [Unknown]
  - Pain [Unknown]
  - General physical health deterioration [Unknown]
  - Arrhythmia [Recovered/Resolved with Sequelae]
  - Brain death [Unknown]

NARRATIVE: CASE EVENT DATE: 20201222
